FAERS Safety Report 10781618 (Version 2)
Quarter: 2015Q1

REPORT INFORMATION
  Report Type: Spontaneous
  Country: US (occurrence: US)
  Receive Date: 20150210
  Receipt Date: 20150210
  Transmission Date: 20150721
  Serious: No
  Sender: FDA-Public Use
  Company Number: US-GLAXOSMITHKLINE-A1078518A

PATIENT
  Age: 68 Year
  Sex: Female

DRUGS (12)
  1. FOLIC ACID. [Concomitant]
     Active Substance: FOLIC ACID
  2. HYDROCODONE [Concomitant]
     Active Substance: HYDROCODONE
  3. BENICAR [Concomitant]
     Active Substance: OLMESARTAN MEDOXOMIL
  4. DICLOFENAC [Concomitant]
     Active Substance: DICLOFENAC
  5. VITAMIN B6 [Concomitant]
     Active Substance: PYRIDOXINE HYDROCHLORIDE
  6. VITAMIN B12 [Concomitant]
     Active Substance: CYANOCOBALAMIN
  7. SYMBICORT [Concomitant]
     Active Substance: BUDESONIDE\FORMOTEROL FUMARATE DIHYDRATE
  8. SIMVASTATIN. [Concomitant]
     Active Substance: SIMVASTATIN
  9. TYKERB [Suspect]
     Active Substance: LAPATINIB DITOSYLATE
     Indication: BREAST CANCER
     Dosage: FIVE 250 MG TABLETS (1250 MG) DAILY
     Route: 048
     Dates: start: 20130617
  10. ALBUTEROL. [Concomitant]
     Active Substance: ALBUTEROL
  11. PROAIR HFA [Concomitant]
     Active Substance: ALBUTEROL SULFATE
  12. UNKNOWN [Concomitant]
     Active Substance: UNSPECIFIED INGREDIENT

REACTIONS (2)
  - Muscle spasms [Unknown]
  - Diarrhoea [Unknown]

NARRATIVE: CASE EVENT DATE: 201406
